FAERS Safety Report 25226753 (Version 1)
Quarter: 2025Q2

REPORT INFORMATION
  Report Type: Spontaneous
  Country: GB (occurrence: GB)
  Receive Date: 20250422
  Receipt Date: 20250422
  Transmission Date: 20250717
  Serious: Yes (Other)
  Sender: MYLAN
  Company Number: GB-TEVA-VS-3320545

PATIENT

DRUGS (8)
  1. ATORVASTATIN [Suspect]
     Active Substance: ATORVASTATIN
     Indication: Product used for unknown indication
     Dosage: 20 MILLIGRAM, QD (STARTING AT 20 MGS AND INCREASED TO 80 MG DAILY)
     Dates: start: 2024
  2. ATORVASTATIN [Suspect]
     Active Substance: ATORVASTATIN
     Dosage: 20 MILLIGRAM, QD (STARTING AT 20 MGS AND INCREASED TO 80 MG DAILY)
     Dates: start: 2024
  3. ATORVASTATIN [Suspect]
     Active Substance: ATORVASTATIN
     Dosage: 20 MILLIGRAM, QD (STARTING AT 20 MGS AND INCREASED TO 80 MG DAILY)
     Route: 048
     Dates: start: 2024
  4. ATORVASTATIN [Suspect]
     Active Substance: ATORVASTATIN
     Dosage: 20 MILLIGRAM, QD (STARTING AT 20 MGS AND INCREASED TO 80 MG DAILY)
     Route: 048
     Dates: start: 2024
  5. ATORVASTATIN [Suspect]
     Active Substance: ATORVASTATIN
     Dosage: 80 MILLIGRAM, QD (STARTING AT 20 MGS AND INCREASED TO 80 MG DAILY)
  6. ATORVASTATIN [Suspect]
     Active Substance: ATORVASTATIN
     Dosage: 80 MILLIGRAM, QD (STARTING AT 20 MGS AND INCREASED TO 80 MG DAILY)
  7. ATORVASTATIN [Suspect]
     Active Substance: ATORVASTATIN
     Dosage: 80 MILLIGRAM, QD (STARTING AT 20 MGS AND INCREASED TO 80 MG DAILY)
     Route: 048
  8. ATORVASTATIN [Suspect]
     Active Substance: ATORVASTATIN
     Dosage: 80 MILLIGRAM, QD (STARTING AT 20 MGS AND INCREASED TO 80 MG DAILY)
     Route: 048

REACTIONS (1)
  - Platelet count decreased [Unknown]
